FAERS Safety Report 4274522-0 (Version None)
Quarter: 2004Q1

REPORT INFORMATION
  Report Type: 
  Country: None (occurrence: None)
  Receive Date: 20040120
  Receipt Date: 20031210
  Transmission Date: 20041129
  Serious: Yes (Hospitalization)
  Sender: FDA-Public Use
  Company Number: GB-ROCHE-353793

PATIENT
  Age: 52 Year
  Sex: Female
  Weight: 70 kg

DRUGS (12)
  1. CAPECITABINE [Suspect]
     Dosage: INTERMITTENT THERAPY OF TWO WEEKS THERAPY, ONE WEEK REST.
     Route: 048
     Dates: start: 20031103, end: 20031207
  2. CAPECITABINE [Suspect]
     Dosage: INTERMITTENT THERAPY OF TWO WEEKS TREATMENT, ONE WEEK REST.
     Route: 048
  3. EPIRUBICIN [Suspect]
     Route: 042
     Dates: start: 20031103
  4. TAXOTERE [Suspect]
     Dosage: INTERMITTENT THERAPY GIVEN WEEKLY FOR FIVE WEEKS, FOLLOWED BY ONE WEEK REST.
     Route: 042
     Dates: start: 20031103
  5. METOCLOPRAMIDE [Concomitant]
     Indication: NAUSEA
     Route: 048
     Dates: start: 20031103
  6. TINZAPARIN [Concomitant]
     Indication: PULMONARY EMBOLISM
     Route: 058
     Dates: start: 20031215
  7. PYRIDOXINE HCL [Concomitant]
     Indication: PALMAR-PLANTAR ERYTHRODYSAESTHESIA SYNDROME
     Route: 048
     Dates: start: 20031229
  8. IBUPROFEN [Concomitant]
     Indication: MYALGIA
     Route: 048
  9. NASEPTIN [Concomitant]
     Route: 045
  10. SALBUTAMOL [Concomitant]
     Dosage: STARTED PRE-STUDY.
     Route: 055
  11. BECOTIDE [Concomitant]
     Dosage: STARTED PRE-STUDY.
     Route: 055
  12. ESTRADIOL [Concomitant]
     Route: 067
     Dates: start: 20031222

REACTIONS (8)
  - C-REACTIVE PROTEIN INCREASED [None]
  - DIZZINESS [None]
  - DYSURIA [None]
  - FEBRILE NEUTROPENIA [None]
  - NASOPHARYNGITIS [None]
  - PYREXIA [None]
  - URINARY TRACT INFECTION [None]
  - VIRAL INFECTION [None]
